FAERS Safety Report 7350308-5 (Version None)
Quarter: 2011Q1

REPORT INFORMATION
  Report Type: 
  Country: None (occurrence: None)
  Receive Date: 20110314
  Receipt Date: 20110303
  Transmission Date: 20110831
  Serious: Yes (Hospitalization)
  Sender: FDA-Public Use
  Company Number: IT-BAYER-2011-020069

PATIENT
  Sex: Female

DRUGS (1)
  1. ULTRAVIST 150 [Suspect]
     Indication: WHOLE BODY SCAN
     Dosage: 130 ML, ONCE
     Route: 042
     Dates: start: 20110301, end: 20110301

REACTIONS (1)
  - BRONCHOSPASM [None]
